FAERS Safety Report 4740376-9 (Version None)
Quarter: 2005Q3

REPORT INFORMATION
  Report Type: 
  Country: None (occurrence: None)
  Receive Date: 20050803
  Receipt Date: 20050519
  Transmission Date: 20060218
  Serious: Yes (Other)
  Sender: FDA-Public Use
  Company Number: 2005-05-1571

PATIENT
  Sex: Male
  Weight: 81.6475 kg

DRUGS (1)
  1. INTERFERON INJECTABLE [Suspect]
     Indication: HEPATITIS C
     Dates: start: 20030101

REACTIONS (5)
  - AMNESIA [None]
  - CONFUSIONAL STATE [None]
  - DISORIENTATION [None]
  - INCOHERENT [None]
  - THOUGHT BLOCKING [None]
